FAERS Safety Report 15965746 (Version 1)
Quarter: 2019Q1

REPORT INFORMATION
  Report Type: Spontaneous
  Country: SA (occurrence: SA)
  Receive Date: 20190215
  Receipt Date: 20190215
  Transmission Date: 20190418
  Serious: Yes (Hospitalization, Other)
  Sender: FDA-Public Use
  Company Number: SA-MACLEODS PHARMACEUTICALS US LTD-MAC2019020094

PATIENT

DRUGS (4)
  1. OLANZAPINE. [Suspect]
     Active Substance: OLANZAPINE
     Dosage: UNK,STARTED LOWERING THE DOSE
     Route: 048
     Dates: start: 2016, end: 201612
  2. OLANZAPINE. [Suspect]
     Active Substance: OLANZAPINE
     Indication: SCHIZOPHRENIA
     Dosage: 20 MILLIGRAM
     Route: 048
     Dates: start: 2001, end: 2016
  3. OLANZAPINE. [Suspect]
     Active Substance: OLANZAPINE
     Dosage: 20 MILLIGRAM
     Route: 048
     Dates: start: 201612, end: 20171018
  4. OLANZAPINE. [Suspect]
     Active Substance: OLANZAPINE
     Dosage: ,5 MILLIGRAM,STARTED LOWERING THE DOSE
     Route: 048
     Dates: start: 201612, end: 201612

REACTIONS (4)
  - Metabolic syndrome [Unknown]
  - Delusion [Recovered/Resolved]
  - Dyslipidaemia [Unknown]
  - Hyperglycaemia [Unknown]

NARRATIVE: CASE EVENT DATE: 2016
